FAERS Safety Report 4283087-9 (Version None)
Quarter: 2004Q1

REPORT INFORMATION
  Report Type: 
  Country: None (occurrence: None)
  Receive Date: 20040129
  Receipt Date: 20040121
  Transmission Date: 20041129
  Serious: Yes (Hospitalization)
  Sender: FDA-Public Use
  Company Number: 0104034; C-526

PATIENT
  Age: 25 Year
  Sex: Female
  Weight: 68.0396 kg

DRUGS (1)
  1. PLAN B (LEVONORGESTREL) 0.75 MG TABLETS [Suspect]
     Indication: CONTRACEPTION
     Dosage: 0.75 MG X 2, ORAL
     Route: 048
     Dates: start: 20040112, end: 20040113

REACTIONS (5)
  - ABDOMINAL PAIN [None]
  - DIARRHOEA [None]
  - DRUG INEFFECTIVE [None]
  - NAUSEA [None]
  - PREGNANCY TEST POSITIVE [None]
